FAERS Safety Report 4932044-5 (Version None)
Quarter: 2006Q1

REPORT INFORMATION
  Report Type: 
  Country: None (occurrence: None)
  Receive Date: 20060227
  Receipt Date: 20060214
  Transmission Date: 20060701
  Serious: Yes (Hospitalization)
  Sender: FDA-Public Use
  Company Number: HQWYE824816FEB06

PATIENT
  Age: 67 Year
  Sex: Female
  Weight: 68.1 kg

DRUGS (5)
  1. RALOXIFENE HCL [Suspect]
     Indication: OSTEOPOROSIS
     Dosage: 60 MG 1X PER 1 DAY, ORAL
     Route: 048
     Dates: start: 20020801
  2. MULTIVITAMINS, PLAIN (MULTIVITAMINS, PLAIN) [Concomitant]
  3. ASPIRIN [Concomitant]
  4. ACETAMINOPHEN [Concomitant]
  5. GLUCOSAMINE W/CHONDROITIN SULFATES (ASCORBIC ACID/CHONDROITIN SULFATE/ [Concomitant]

REACTIONS (1)
  - CHEST PAIN [None]
